FAERS Safety Report 7000914-2 (Version None)
Quarter: 2010Q3

REPORT INFORMATION
  Report Type: 
  Country: None (occurrence: None)
  Receive Date: 20100920
  Receipt Date: 20100910
  Transmission Date: 20110219
  Serious: Yes (Other)
  Sender: FDA-Public Use
  Company Number: PHFR2010IE03387

PATIENT
  Sex: Male

DRUGS (3)
  1. CLOZARIL [Suspect]
     Indication: SCHIZOPHRENIA
     Dosage: 800 MG DAY
     Route: 048
     Dates: start: 20100318
  2. AMISULPRIDE [Suspect]
  3. VALPROATE SODIUM [Concomitant]

REACTIONS (5)
  - ANTIPSYCHOTIC DRUG LEVEL INCREASED [None]
  - DERMATITIS CONTACT [None]
  - DROOLING [None]
  - RASH [None]
  - VOMITING [None]
